FAERS Safety Report 11481128 (Version 1)
Quarter: 2015Q3

REPORT INFORMATION
  Report Type: Spontaneous
  Country: US (occurrence: US)
  Receive Date: 20150909
  Receipt Date: 20150909
  Transmission Date: 20151125
  Serious: Yes (Other)
  Sender: FDA-Public Use
  Company Number: US-ALKERMES INC.-ALK-2015-000768

PATIENT

DRUGS (5)
  1. VIVITROL [Suspect]
     Active Substance: NALTREXONE
     Dosage: 380 MG, QMO
     Route: 030
  2. LITHIUM. [Concomitant]
     Active Substance: LITHIUM
     Indication: BIPOLAR DISORDER
     Dosage: UNK
  3. VIVITROL [Suspect]
     Active Substance: NALTREXONE
     Indication: ALCOHOLISM
     Dosage: 380 MG, QMO
     Route: 030
     Dates: start: 2010, end: 2011
  4. HORMONES [Concomitant]
     Active Substance: UNSPECIFIED INGREDIENT
     Indication: PROGESTERONE ABNORMAL
     Dosage: UNK
  5. HORMONES [Concomitant]
     Active Substance: UNSPECIFIED INGREDIENT
     Indication: BLOOD TESTOSTERONE DECREASED

REACTIONS (21)
  - Injection site reaction [Not Recovered/Not Resolved]
  - Injection site pruritus [Not Recovered/Not Resolved]
  - Anaemia vitamin B12 deficiency [Unknown]
  - Progesterone abnormal [Unknown]
  - Injection site induration [Not Recovered/Not Resolved]
  - Acute stress disorder [Recovered/Resolved]
  - Precancerous cells present [Not Recovered/Not Resolved]
  - Alcohol abuse [Recovered/Resolved]
  - Fatigue [Unknown]
  - Vitamin D abnormal [Unknown]
  - Blood testosterone decreased [Unknown]
  - Injection site mass [Not Recovered/Not Resolved]
  - Injection site pain [Not Recovered/Not Resolved]
  - Alcoholism [Not Recovered/Not Resolved]
  - Alcoholism [None]
  - Nausea [Unknown]
  - Thyroid function test abnormal [Unknown]
  - Injection site swelling [Not Recovered/Not Resolved]
  - Injection site warmth [Not Recovered/Not Resolved]
  - Influenza like illness [Unknown]
  - Injury [None]

NARRATIVE: CASE EVENT DATE: 2010
